FAERS Safety Report 8576404-2 (Version None)
Quarter: 2012Q3

REPORT INFORMATION
  Report Type: 
  Country: None (occurrence: None)
  Receive Date: 20120807
  Receipt Date: 20120802
  Transmission Date: 20120928
  Serious: Yes (Death, Other)
  Sender: FDA-Public Use
  Company Number: CH-PFIZER INC-2011111340

PATIENT
  Age: 80 Year
  Sex: Male
  Weight: 63 kg

DRUGS (1)
  1. TORISEL [Suspect]
     Indication: MANTLE CELL LYMPHOMA REFRACTORY
     Dosage: 175 MG, WEEKLY
     Route: 042
     Dates: start: 20110427, end: 20110511

REACTIONS (5)
  - FALL [None]
  - PNEUMONIA [None]
  - LOWER LIMB FRACTURE [None]
  - RENAL FAILURE [None]
  - SEPSIS [None]
